FAERS Safety Report 15214848 (Version 1)
Quarter: 2018Q3

REPORT INFORMATION
  Report Type: Spontaneous
  Country: US (occurrence: US)
  Receive Date: 20180730
  Receipt Date: 20180730
  Transmission Date: 20181010
  Serious: Yes (Hospitalization)
  Sender: FDA-Public Use
  Company Number: US-BIOGEN-2008BI031228

PATIENT
  Age: 67 Year
  Sex: Female
  Weight: 61.29 kg

DRUGS (4)
  1. AVONEX [Suspect]
     Active Substance: INTERFERON BETA-1A
     Route: 030
     Dates: start: 2003
  2. AVONEX [Suspect]
     Active Substance: INTERFERON BETA-1A
     Route: 030
  3. AVONEX [Suspect]
     Active Substance: INTERFERON BETA-1A
     Dosage: ROTATE INJECTION SITE
     Route: 030
     Dates: start: 2008
  4. AVONEX [Suspect]
     Active Substance: INTERFERON BETA-1A
     Indication: MULTIPLE SCLEROSIS
     Route: 030
     Dates: start: 19990401, end: 2003

REACTIONS (6)
  - Injection site haemorrhage [Unknown]
  - Injection site bruising [Unknown]
  - Pain [Unknown]
  - Myalgia [Unknown]
  - Meningitis aseptic [Recovered/Resolved]
  - Depression [Unknown]

NARRATIVE: CASE EVENT DATE: 20081014
